FAERS Safety Report 6266083-1 (Version None)
Quarter: 2009Q3

REPORT INFORMATION
  Report Type: 
  Country: None (occurrence: None)
  Receive Date: 20090713
  Receipt Date: 20090701
  Transmission Date: 20100115
  Serious: Yes (Hospitalization)
  Sender: FDA-Public Use
  Company Number: DE-ELI_LILLY_AND_COMPANY-DE200907000635

PATIENT
  Sex: Female

DRUGS (2)
  1. FLUCTIN [Suspect]
     Route: 048
  2. FLUCTIN [Suspect]
     Route: 048

REACTIONS (3)
  - DRUG INEFFECTIVE [None]
  - ENDOSCOPY UPPER GASTROINTESTINAL TRACT [None]
  - FEELING ABNORMAL [None]
